FAERS Safety Report 21359288 (Version 1)
Quarter: 2022Q3

REPORT INFORMATION
  Report Type: Report from Study
  Country: BR (occurrence: BR)
  Receive Date: 20220921
  Receipt Date: 20220921
  Transmission Date: 20221026
  Serious: Yes (Life-Threatening)
  Sender: FDA-Public Use
  Company Number: BR-NOVARTISPH-NVSC2022BR176980

PATIENT
  Sex: Female

DRUGS (3)
  1. KISQALI [Suspect]
     Active Substance: RIBOCICLIB
     Indication: Breast cancer
     Dosage: 3 DOSAGE FORM, QD
     Route: 065
  2. KISQALI [Suspect]
     Active Substance: RIBOCICLIB
     Dosage: 1 DOSAGE FORM, QD
     Route: 065
  3. KISQALI [Suspect]
     Active Substance: RIBOCICLIB
     Dosage: UNK
     Route: 065
     Dates: end: 202208

REACTIONS (10)
  - Drug-induced liver injury [Unknown]
  - Feeling abnormal [Unknown]
  - Alanine aminotransferase abnormal [Unknown]
  - Malaise [Unknown]
  - Oestrogen receptor assay positive [Unknown]
  - Progesterone receptor assay negative [Unknown]
  - Human epidermal growth factor receptor negative [Unknown]
  - Immune system disorder [Unknown]
  - Asthenia [Unknown]
  - Hepatic function abnormal [Unknown]
